FAERS Safety Report 6080966-7 (Version None)
Quarter: 2009Q1

REPORT INFORMATION
  Report Type: 
  Country: None (occurrence: None)
  Receive Date: 20090217
  Receipt Date: 20090209
  Transmission Date: 20090719
  Serious: Yes (Other)
  Sender: FDA-Public Use
  Company Number: GB-B.I. PHARMACEUTICALS,INC./RIDGEFIELD-2008-UK-01717UK

PATIENT
  Sex: Female

DRUGS (4)
  1. VIRAMUNE [Suspect]
     Indication: HIV TEST POSITIVE
     Dosage: 200MG
     Route: 048
     Dates: start: 20080926
  2. VIRAMUNE [Suspect]
     Dosage: 400MG
     Route: 048
     Dates: start: 20081010, end: 20081023
  3. ABACAVIR SULFATE/LAMIVUDINE [Concomitant]
  4. TRUVADA [Concomitant]
     Indication: IMMUNOSUPPRESSION
     Dosage: 1ANZ
     Route: 048
     Dates: start: 20080925

REACTIONS (5)
  - ALANINE AMINOTRANSFERASE INCREASED [None]
  - ASPARTATE AMINOTRANSFERASE INCREASED [None]
  - BLOOD AMYLASE INCREASED [None]
  - RASH [None]
  - VOMITING [None]
